FAERS Safety Report 14122487 (Version 1)
Quarter: 2017Q4

REPORT INFORMATION
  Report Type: Report from Study
  Country: None (occurrence: RU)
  Receive Date: 20171024
  Receipt Date: 20171024
  Transmission Date: 20180321
  Serious: Yes (Hospitalization)
  Sender: FDA-Public Use
  Company Number: RU-ABBVIE-17P-251-2107902-00

PATIENT
  Age: 66 Year
  Sex: Female

DRUGS (12)
  1. BISOPROLOL [Concomitant]
     Active Substance: BISOPROLOL
     Indication: HYPERTENSION
     Route: 048
     Dates: start: 201402
  2. NIMEULID [Concomitant]
     Indication: RHEUMATOID ARTHRITIS
     Route: 048
     Dates: start: 201011
  3. METOTREXAT [Concomitant]
     Active Substance: METHOTREXATE SODIUM
     Indication: RHEUMATOID ARTHRITIS
     Route: 048
     Dates: start: 201101, end: 201403
  4. LASORTAN [Concomitant]
     Indication: HYPERTENSION
     Route: 048
     Dates: start: 201402
  5. GLIBENCLAMID [Concomitant]
     Active Substance: GLYBURIDE
     Indication: DIABETES MELLITUS
     Route: 048
     Dates: start: 201402
  6. HUMIRA [Suspect]
     Active Substance: ADALIMUMAB
     Indication: RHEUMATOID ARTHRITIS
     Route: 058
     Dates: start: 20170418
  7. NIMEULID [Concomitant]
     Route: 048
     Dates: start: 201011
  8. METOTREXAT [Concomitant]
     Active Substance: METHOTREXATE SODIUM
     Route: 048
     Dates: start: 201403, end: 20161201
  9. METFOMIN [Concomitant]
     Active Substance: METFORMIN HYDROCHLORIDE
     Indication: DIABETES MELLITUS
     Route: 048
     Dates: start: 201402
  10. NIMESULID [Concomitant]
     Active Substance: NIMESULIDE
     Indication: RHEUMATOID ARTHRITIS
     Route: 048
     Dates: start: 201011
  11. METOTREXAT [Concomitant]
     Active Substance: METHOTREXATE SODIUM
     Route: 048
     Dates: start: 20161202
  12. FOLIC ACID. [Concomitant]
     Active Substance: FOLIC ACID
     Indication: VITAMIN SUPPLEMENTATION
     Route: 048
     Dates: start: 201101

REACTIONS (1)
  - Idiopathic pulmonary fibrosis [Recovered/Resolved]

NARRATIVE: CASE EVENT DATE: 20170914
